FAERS Safety Report 17216106 (Version 3)
Quarter: 2020Q1

REPORT INFORMATION
  Report Type: Report from Study
  Country: TH (occurrence: TH)
  Receive Date: 20191230
  Receipt Date: 20200109
  Transmission Date: 20200409
  Serious: Yes (Hospitalization, Other)
  Sender: FDA-Public Use
  Company Number: TH-BAYER-2019-209972

PATIENT
  Age: 80 Year
  Sex: Male

DRUGS (2)
  1. STIVARGA [Suspect]
     Active Substance: REGORAFENIB
     Indication: COLORECTAL CANCER
     Dosage: 40 MG UNK
     Dates: end: 20191117
  2. STIVARGA [Suspect]
     Active Substance: REGORAFENIB
     Indication: COLORECTAL CANCER
     Dosage: UNK
     Dates: end: 20191216

REACTIONS (5)
  - Hemiparesis [None]
  - Gait disturbance [None]
  - Skin exfoliation [None]
  - Cerebral haemorrhage [None]
  - Pain in extremity [None]

NARRATIVE: CASE EVENT DATE: 20191111
